FAERS Safety Report 7134222-6 (Version None)
Quarter: 2010Q4

REPORT INFORMATION
  Report Type: 
  Country: None (occurrence: None)
  Receive Date: 20101203
  Receipt Date: 20101124
  Transmission Date: 20110411
  Serious: Yes (Other)
  Sender: FDA-Public Use
  Company Number: JP-ASTRAZENECA-2010SE51730

PATIENT
  Age: 16532 Day
  Sex: Male
  Weight: 78 kg

DRUGS (2)
  1. CRESTOR [Suspect]
     Indication: HYPERCHOLESTEROLAEMIA
     Route: 048
     Dates: start: 20100911, end: 20101013
  2. SHAKUYAKU-KANZO-TO [Concomitant]
     Indication: MUSCLE SPASMS
     Route: 048
     Dates: start: 20101009, end: 20101013

REACTIONS (1)
  - HEPATIC FUNCTION ABNORMAL [None]
